FAERS Safety Report 12537436 (Version 2)
Quarter: 2016Q3

REPORT INFORMATION
  Report Type: Report from Study
  Country: ES (occurrence: ES)
  Receive Date: 20160707
  Receipt Date: 20160719
  Transmission Date: 20161109
  Serious: Yes (Hospitalization, Other)
  Sender: FDA-Public Use
  Company Number: ES-BRISTOL-MYERS SQUIBB COMPANY-BMS-2016-053724

PATIENT
  Age: 69 Year
  Sex: Male

DRUGS (1)
  1. NIVOLUMAB [Suspect]
     Active Substance: NIVOLUMAB
     Indication: NON-SMALL CELL LUNG CANCER
     Dosage: 3 MG/KG, EVERY 3 WEEKS
     Route: 042
     Dates: start: 20160321

REACTIONS (1)
  - Gastric ulcer [Recovered/Resolved]

NARRATIVE: CASE EVENT DATE: 20160627
